FAERS Safety Report 5634294-1 (Version None)
Quarter: 2008Q1

REPORT INFORMATION
  Report Type: 
  Country: None (occurrence: None)
  Receive Date: 20080131
  Receipt Date: 20070904
  Transmission Date: 20080703
  Serious: Yes (Hospitalization)
  Sender: FDA-Public Use
  Company Number: 160977USA

PATIENT
  Age: 64 Year
  Sex: Female

DRUGS (9)
  1. COPAXONE [Suspect]
     Indication: MULTIPLE SCLEROSIS
     Dosage: 20 MG (20 MG, 1 IN 1 D), SUBCUTANEOUS
     Route: 058
     Dates: start: 20020614
  2. GABAPENTIN [Concomitant]
  3. BACLOFEN [Concomitant]
  4. AMITRIPTYLINE HYDROCHLORIDE [Concomitant]
  5. MACROGOL [Concomitant]
  6. SENNA ALEXANDRINA [Concomitant]
  7. DOCUSATE SODIUM [Concomitant]
  8. HYDROCHLOROTHIAZIDE [Concomitant]
  9. IBUPROFEN [Concomitant]

REACTIONS (1)
  - CONSTIPATION [None]
